FAERS Safety Report 13409864 (Version 4)
Quarter: 2017Q3

REPORT INFORMATION
  Report Type: Spontaneous
  Country: US (occurrence: US)
  Receive Date: 20170406
  Receipt Date: 20170825
  Transmission Date: 20171127
  Serious: No
  Sender: FDA-Public Use
  Company Number: US-PFIZER INC-2017145284

PATIENT
  Age: 39 Year
  Sex: Female

DRUGS (9)
  1. TOPROL XL [Concomitant]
     Active Substance: METOPROLOL SUCCINATE
     Dosage: 50 MG, UNK
  2. METHOTREXATE. [Concomitant]
     Active Substance: METHOTREXATE
     Dosage: 2.5 MG, UNK
  3. XELJANZ XR [Suspect]
     Active Substance: TOFACITINIB CITRATE
     Indication: RHEUMATOID ARTHRITIS
     Dosage: 11 MG, 1X/DAY (11 MG XR PO QD )
     Route: 048
     Dates: start: 201701
  4. SPECTAZOLE [Concomitant]
     Active Substance: ECONAZOLE NITRATE
     Dosage: UNK
  5. NORCO [Concomitant]
     Active Substance: ACETAMINOPHEN\HYDROCODONE BITARTRATE
     Dosage: UNK (HYDROCODONE 5MG/PARACETAMOL 325MG)
  6. NORVASC [Concomitant]
     Active Substance: AMLODIPINE BESYLATE
     Dosage: 2.5 MG, UNK
  7. FOLIC ACID. [Concomitant]
     Active Substance: FOLIC ACID
     Dosage: 1 MG, UNK
  8. LIDEX [Concomitant]
     Active Substance: FLUOCINONIDE
  9. ACLOVATE [Concomitant]
     Active Substance: ALCLOMETASONE DIPROPIONATE

REACTIONS (6)
  - Tenosynovitis [Recovering/Resolving]
  - Inflammation [Recovering/Resolving]
  - Arthralgia [Recovering/Resolving]
  - Joint swelling [Recovering/Resolving]
  - Arthritis [Recovering/Resolving]
  - Synovitis [Recovering/Resolving]
